FAERS Safety Report 14309048 (Version 1)
Quarter: 2017Q4

REPORT INFORMATION
  Report Type: Spontaneous
  Country: US (occurrence: US)
  Receive Date: 20171220
  Receipt Date: 20171220
  Transmission Date: 20180321
  Serious: Yes (Hospitalization, Disabling, Other)
  Sender: FDA-Public Use
  Company Number: US-009507513-1204USA02855

PATIENT
  Sex: Female

DRUGS (6)
  1. ALENDRONATE SODIUM. [Suspect]
     Active Substance: ALENDRONATE SODIUM
     Indication: OSTEOPENIA
  2. FOSAMAX [Suspect]
     Active Substance: ALENDRONATE SODIUM
     Indication: OSTEOPOROSIS
     Dosage: UNK
     Route: 048
     Dates: start: 2000, end: 200105
  3. FOSAMAX [Suspect]
     Active Substance: ALENDRONATE SODIUM
     Indication: OSTEOPOROSIS
     Dosage: 70 MG, UNKNOWN
     Route: 048
     Dates: start: 200106, end: 200307
  4. FOSAMAX [Suspect]
     Active Substance: ALENDRONATE SODIUM
     Indication: PRODUCT USED FOR UNKNOWN INDICATION
     Dosage: 70 MG, QD
     Route: 048
  5. FOSAMAX [Suspect]
     Active Substance: ALENDRONATE SODIUM
     Indication: OSTEOPENIA
     Dosage: 70 MG, UNK
     Route: 048
     Dates: start: 200609, end: 200801
  6. ALENDRONATE SODIUM. [Suspect]
     Active Substance: ALENDRONATE SODIUM
     Indication: OSTEOPOROSIS
     Dosage: 70 MG, QW
     Route: 048
     Dates: start: 200802, end: 200811

REACTIONS (15)
  - Femur fracture [Recovering/Resolving]
  - Gastrointestinal motility disorder [Unknown]
  - Humerus fracture [Unknown]
  - Inappropriate schedule of drug administration [Unknown]
  - Hyperlipidaemia [Unknown]
  - Hypertension [Unknown]
  - Constipation [Unknown]
  - Femur fracture [Recovering/Resolving]
  - Arthritis [Unknown]
  - Bone disorder [Unknown]
  - Carpal tunnel decompression [Unknown]
  - Purulent discharge [Unknown]
  - Dyspepsia [Unknown]
  - Restless legs syndrome [Unknown]
  - Biopsy breast [Unknown]

NARRATIVE: CASE EVENT DATE: 20060907
